FAERS Safety Report 23229087 (Version 2)
Quarter: 2024Q2

REPORT INFORMATION
  Report Type: Spontaneous
  Country: US (occurrence: US)
  Receive Date: 20231127
  Receipt Date: 20240402
  Transmission Date: 20240716
  Serious: Yes (Other)
  Sender: FDA-Public Use
  Company Number: US-STRIDES ARCOLAB LIMITED-2023SP006687

PATIENT
  Age: 76 Year
  Sex: Female
  Weight: 84.354 kg

DRUGS (4)
  1. LOSARTAN [Suspect]
     Active Substance: LOSARTAN
     Indication: Hypertension
     Dosage: UNK; (STRENGTH: 50MG TABLET)
     Route: 065
  2. LOSARTAN [Suspect]
     Active Substance: LOSARTAN
     Dosage: QD; TABLET; (1 TIME IN THE MORNING); (STRENGTH: 100 MILLIGRAM)
     Route: 048
     Dates: start: 20230424, end: 20230502
  3. LOSARTAN [Suspect]
     Active Substance: LOSARTAN
     Dosage: UNK; TOOK ANOTHER PILL
     Route: 065
     Dates: start: 20230424
  4. AMLODIPINE [Concomitant]
     Active Substance: AMLODIPINE BESYLATE
     Indication: Hypertension
     Dosage: QD; (DRUG STARTED 3 TO 4 YEARS AGO)
     Route: 065

REACTIONS (1)
  - Drug ineffective [Unknown]

NARRATIVE: CASE EVENT DATE: 20230424
